FAERS Safety Report 20699690 (Version 3)
Quarter: 2022Q2

REPORT INFORMATION
  Report Type: Report from Study
  Country: DK (occurrence: None)
  Receive Date: 20220412
  Receipt Date: 20220630
  Transmission Date: 20220720
  Serious: Yes (Hospitalization)
  Sender: FDA-Public Use
  Company Number: DK-ROCHE-3070219

PATIENT
  Age: 69 Year
  Sex: Male
  Weight: 92.3 kg

DRUGS (10)
  1. COBIMETINIB [Suspect]
     Active Substance: COBIMETINIB
     Indication: BRAF gene mutation
     Dosage: DAILY DOSE: 60 UNIT NOT REPORTED
     Route: 048
     Dates: start: 20220315, end: 20220323
  2. COBIMETINIB [Suspect]
     Active Substance: COBIMETINIB
     Dosage: DAILY DOSE: 40 UNIT NOT REPORTED
     Route: 048
     Dates: end: 20220608
  3. VEMURAFENIB [Suspect]
     Active Substance: VEMURAFENIB
     Indication: BRAF gene mutation
     Dosage: DAILY DOSE: 1920 UNIT NOT REPORTED
     Route: 048
     Dates: start: 20220315, end: 20220323
  4. VEMURAFENIB [Suspect]
     Active Substance: VEMURAFENIB
     Dosage: DAILY DOSE: 960 UNIT NOT REPORTED
     Route: 048
     Dates: end: 20220608
  5. POTASSIUM CHLORIDE [Concomitant]
     Active Substance: POTASSIUM CHLORIDE
     Indication: Hypokalaemia
     Route: 048
     Dates: start: 20220615, end: 20220617
  6. POTASSIUM CHLORIDE [Concomitant]
     Active Substance: POTASSIUM CHLORIDE
     Route: 048
     Dates: start: 20220620
  7. NATRIUM BICARBONAT [Concomitant]
     Indication: Hyponatraemia
     Route: 048
     Dates: start: 20220616, end: 20220620
  8. FUROSEMIDE [Concomitant]
     Active Substance: FUROSEMIDE
     Indication: Fluid retention
     Route: 048
     Dates: start: 20220616
  9. SITAGLIPTIN [Concomitant]
     Active Substance: SITAGLIPTIN
     Indication: Diabetes mellitus
     Route: 048
     Dates: start: 20220615, end: 20220616
  10. LEVEMIR [Concomitant]
     Active Substance: INSULIN DETEMIR
     Indication: Diabetes mellitus
     Dates: start: 20220615, end: 20220620

REACTIONS (1)
  - Dehydration [Recovered/Resolved]

NARRATIVE: CASE EVENT DATE: 20220323
